FAERS Safety Report 24416232 (Version 1)
Quarter: 2024Q4

REPORT INFORMATION
  Report Type: Spontaneous
  Country: US (occurrence: None)
  Receive Date: 20241008
  Receipt Date: 20241008
  Transmission Date: 20250115
  Serious: No
  Sender: Public
  Company Number: None

PATIENT
  Age: 81 Year
  Sex: Male
  Weight: 91 kg

DRUGS (4)
  1. LOSARTAN [Suspect]
     Active Substance: LOSARTAN
     Indication: Cardiac failure congestive
     Dosage: FREQUENCY : AT BEDTIME;?
     Route: 048
  2. SPIRONOLACTONE [Suspect]
     Active Substance: SPIRONOLACTONE
     Indication: Cardiac failure congestive
     Dosage: FREQUENCY : DAILY;?
     Route: 048
  3. METOPROLOL [Suspect]
     Active Substance: METOPROLOL
  4. EMPAGLIFLOZIN [Suspect]
     Active Substance: EMPAGLIFLOZIN

REACTIONS (1)
  - Orthostatic hypotension [None]

NARRATIVE: CASE EVENT DATE: 20240522
